FAERS Safety Report 15808770 (Version 4)
Quarter: 2021Q2

REPORT INFORMATION
  Report Type: Other
  Country: US (occurrence: US)
  Receive Date: 20190110
  Receipt Date: 20210519
  Transmission Date: 20210716
  Serious: No
  Sender: FDA-Public Use
  Company Number: US-ROCHE-2206480

PATIENT
  Age: 76 Year
  Sex: Female
  Weight: 70.82 kg

DRUGS (3)
  1. OCREVUS [Suspect]
     Active Substance: OCRELIZUMAB
     Route: 065
  2. OCREVUS [Suspect]
     Active Substance: OCRELIZUMAB
     Indication: RELAPSING-REMITTING MULTIPLE SCLEROSIS
     Dosage: HALF DOSE
     Route: 065
     Dates: start: 20180620
  3. OCREVUS [Suspect]
     Active Substance: OCRELIZUMAB
     Route: 065

REACTIONS (15)
  - Nasopharyngitis [Unknown]
  - Erythema [Recovered/Resolved]
  - Chills [Unknown]
  - Upper limb fracture [Recovered/Resolved]
  - Dry age-related macular degeneration [Not Recovered/Not Resolved]
  - Influenza [Recovered/Resolved]
  - Oropharyngeal pain [Unknown]
  - Cardiac flutter [Recovered/Resolved]
  - Fall [Unknown]
  - Cough [Recovered/Resolved]
  - Chest discomfort [Unknown]
  - Vertigo [Unknown]
  - Fatigue [Unknown]
  - Respiration abnormal [Unknown]
  - Burning sensation [Recovered/Resolved]

NARRATIVE: CASE EVENT DATE: 20180620
